FAERS Safety Report 5043467-0 (Version None)
Quarter: 2006Q3

REPORT INFORMATION
  Report Type: 
  Country: None (occurrence: None)
  Receive Date: 20060705
  Receipt Date: 20060620
  Transmission Date: 20061208
  Serious: Yes (Hospitalization)
  Sender: FDA-Public Use
  Company Number: NL-BOEHRINGER INGELHEIM PHARMACEUTICALS, INC.-2006-NL-00166NL

PATIENT
  Age: 16 Year
  Sex: Male
  Weight: 74 kg

DRUGS (3)
  1. DIXARIT [Suspect]
     Indication: ATTENTION DEFICIT/HYPERACTIVITY DISORDER
     Dosage: 4-3-4 (TOTAL 11) TABLETS PER DAY
     Route: 048
  2. DIXARIT [Suspect]
     Indication: TOURETTE'S DISORDER
  3. DUSPATAL [Concomitant]
     Indication: IRRITABLE BOWEL SYNDROME
     Route: 048
     Dates: start: 20060228, end: 20060308

REACTIONS (5)
  - APPENDICITIS [None]
  - CONSTIPATION [None]
  - DRY EYE [None]
  - EPIGASTRIC DISCOMFORT [None]
  - PRESCRIBED OVERDOSE [None]
